FAERS Safety Report 15897454 (Version 2)
Quarter: 2019Q1

REPORT INFORMATION
  Report Type: Spontaneous
  Country: US (occurrence: US)
  Receive Date: 20190131
  Receipt Date: 20190216
  Transmission Date: 20190417
  Serious: Yes (Other)
  Sender: FDA-Public Use
  Company Number: US-PRINSTON PHARMACEUTICAL INC.-2019PRN00077

PATIENT
  Age: 61 Year
  Sex: Male

DRUGS (2)
  1. RISPERIDONE. [Suspect]
     Active Substance: RISPERIDONE
     Dosage: 1 MG, 2X/DAY
     Route: 048
     Dates: start: 1994
  2. RISPERIDONE. [Suspect]
     Active Substance: RISPERIDONE
     Dosage: 4 MG, 2X/DAY
     Route: 048
     Dates: start: 1994

REACTIONS (3)
  - Social avoidant behaviour [Unknown]
  - Feeling abnormal [Unknown]
  - Hallucination, auditory [Unknown]
